FAERS Safety Report 14391051 (Version 1)
Quarter: 2018Q1

REPORT INFORMATION
  Report Type: Spontaneous
  Country: US (occurrence: US)
  Receive Date: 20180116
  Receipt Date: 20180116
  Transmission Date: 20180509
  Serious: No
  Sender: FDA-Public Use
  Company Number: US-PFIZER INC-2018015787

PATIENT
  Sex: Female

DRUGS (1)
  1. ADVIL LIQUI-GELS [Suspect]
     Active Substance: IBUPROFEN
     Dosage: 3 DF, UNK

REACTIONS (5)
  - Extra dose administered [Unknown]
  - Product commingling [Unknown]
  - Product taste abnormal [Unknown]
  - Poor quality drug administered [Unknown]
  - Dysgeusia [Unknown]
